FAERS Safety Report 9166795 (Version 1)
Quarter: 2012Q4

REPORT INFORMATION
  Report Type: 
  Country: US (occurrence: US)
  Receive Date: 20121112
  Receipt Date: 20121112
  Transmission Date: 20130627
  Serious: Yes (Hospitalization)
  Sender: FDA-Public Use
  Company Number: US-RB-046532-12

PATIENT
  Age: 45 Year
  Sex: Female

DRUGS (5)
  1. SUBOXONE FILM [Suspect]
     Indication: DRUG DEPENDENCE
     Dosage: One time
     Route: 060
     Dates: start: 20121016, end: 20121016
  2. SYNTHROID [Concomitant]
     Indication: THYROID DISORDER
     Dosage: Dosage details not provided
     Route: 065
  3. UNSPECIFIED DIURETIC [Concomitant]
     Indication: SWELLING
     Dosage: Dosage details not provided
     Route: 065
  4. ZOLOFT [Concomitant]
     Indication: ANXIETY
     Dosage: Dosage details not provided
     Route: 065
  5. ZOLOFT [Concomitant]
     Indication: DEPRESSION
     Dosage: Dosage details not provided
     Route: 065

REACTIONS (3)
  - Cardiac failure congestive [Unknown]
  - Pneumonia [Recovered/Resolved]
  - Off label use [Recovered/Resolved]
